FAERS Safety Report 10103105 (Version 2)
Quarter: 2014Q2

REPORT INFORMATION
  Report Type: Spontaneous
  Country: US (occurrence: US)
  Receive Date: 20140424
  Receipt Date: 20140602
  Transmission Date: 20141212
  Serious: Yes (Hospitalization)
  Sender: FDA-Public Use
  Company Number: US-GLAXOSMITHKLINE-A1069793A

PATIENT
  Age: 56 Year
  Sex: Male

DRUGS (6)
  1. VENTOLIN [Suspect]
     Indication: ASTHMA
     Dosage: 90MCG AS REQUIRED
     Route: 055
     Dates: start: 20101008
  2. ADVAIR HFA [Suspect]
     Indication: CHRONIC OBSTRUCTIVE PULMONARY DISEASE
     Dosage: 1PUFF TWICE PER DAY
     Route: 055
     Dates: start: 20090622
  3. LISINOPRIL [Concomitant]
  4. COUMADIN [Concomitant]
  5. PACERONE [Concomitant]
  6. FUROSEMIDE [Concomitant]

REACTIONS (4)
  - Lower limb fracture [Unknown]
  - Ankle operation [Unknown]
  - Road traffic accident [Unknown]
  - Ankle fracture [Unknown]
